FAERS Safety Report 6371544-0 (Version None)
Quarter: 2009Q3

REPORT INFORMATION
  Report Type: 
  Country: None (occurrence: None)
  Receive Date: 20090923
  Receipt Date: 20080409
  Transmission Date: 20100115
  Serious: Yes (Hospitalization)
  Sender: FDA-Public Use
  Company Number: US-ASTRAZENECA-2007UW16989

PATIENT
  Age: 12047 Day
  Sex: Male
  Weight: 78 kg

DRUGS (9)
  1. SEROQUEL [Suspect]
     Indication: BIPOLAR DISORDER
     Route: 048
     Dates: start: 20000601, end: 20060504
  2. SEROQUEL [Suspect]
     Dosage: 100-800 MG
     Route: 048
     Dates: start: 20000211
  3. SEROQUEL [Suspect]
     Route: 048
     Dates: start: 20060601
  4. GEODON [Concomitant]
     Dosage: 20 MG, AS REQUIRED
     Route: 048
  5. ATIVAN [Concomitant]
     Route: 048
  6. VALIUM [Concomitant]
     Route: 048
  7. RISPERDAL [Concomitant]
     Dosage: 2MG - 4 MG
     Route: 048
  8. COGENTIN [Concomitant]
     Route: 048
  9. LITHOBID [Concomitant]
     Route: 048

REACTIONS (2)
  - BLOOD DISORDER [None]
  - DIABETES MELLITUS [None]
